FAERS Safety Report 5375215-9 (Version None)
Quarter: 2007Q2

REPORT INFORMATION
  Report Type: 
  Country: None (occurrence: None)
  Receive Date: 20070629
  Receipt Date: 20070621
  Transmission Date: 20071010
  Serious: Yes (Hospitalization, Other)
  Sender: FDA-Public Use
  Company Number: AT-ASTRAZENECA-2007PK01280

PATIENT
  Age: 24016 Day
  Sex: Female
  Weight: 69 kg

DRUGS (1)
  1. NOLVADEX [Suspect]
     Indication: BREAST CANCER
     Route: 048
     Dates: start: 20020117, end: 20061207

REACTIONS (2)
  - ENDOMETRIAL HYPERPLASIA [None]
  - UTERINE DISORDER [None]
